FAERS Safety Report 8373371-1 (Version None)
Quarter: 2012Q2

REPORT INFORMATION
  Report Type: 
  Country: None (occurrence: None)
  Receive Date: 20120521
  Receipt Date: 20120507
  Transmission Date: 20120825
  Serious: Yes (Other)
  Sender: FDA-Public Use
  Company Number: US-ELI_LILLY_AND_COMPANY-US201204002863

PATIENT
  Age: 51 Year
  Sex: Female
  Weight: 87.075 kg

DRUGS (1)
  1. CYMBALTA [Suspect]
     Indication: DEPRESSION
     Dosage: 30 MG, QD
     Route: 048
     Dates: start: 20111115, end: 20120402

REACTIONS (4)
  - STOMATITIS [None]
  - SCAB [None]
  - RASH [None]
  - ORAL CANDIDIASIS [None]
